FAERS Safety Report 8208679-3 (Version None)
Quarter: 2012Q1

REPORT INFORMATION
  Report Type: 
  Country: None (occurrence: None)
  Receive Date: 20120314
  Receipt Date: 20120306
  Transmission Date: 20120608
  Serious: Yes (Hospitalization)
  Sender: FDA-Public Use
  Company Number: US-BAYER-2011-090832

PATIENT
  Age: 33 Year
  Sex: Female
  Weight: 68.027 kg

DRUGS (6)
  1. SYNTHROID [Concomitant]
     Route: 048
  2. YAZ [Suspect]
     Indication: CONTRACEPTION
  3. YAZ [Suspect]
     Indication: ACNE
     Dosage: UNK
     Route: 048
     Dates: start: 20070101, end: 20110101
  4. YAZ [Suspect]
     Indication: PREMENSTRUAL SYNDROME
     Dosage: UNK
     Route: 048
     Dates: start: 20050101, end: 20080101
  5. THYROID MEDICATIONS [Concomitant]
  6. LUNESTA [Concomitant]
     Route: 048

REACTIONS (9)
  - CHOLECYSTITIS [None]
  - ANXIETY [None]
  - VOMITING [None]
  - PROCEDURAL PAIN [None]
  - INJURY [None]
  - ABDOMINAL PAIN [None]
  - GALLBLADDER DISORDER [None]
  - EMOTIONAL DISTRESS [None]
  - NAUSEA [None]
